FAERS Safety Report 4527847-5 (Version None)
Quarter: 2004Q4

REPORT INFORMATION
  Report Type: 
  Country: None (occurrence: None)
  Receive Date: 20041123
  Receipt Date: 20040727
  Transmission Date: 20050328
  Serious: Yes (Hospitalization)
  Sender: FDA-Public Use
  Company Number: ATO-04-0691

PATIENT
  Age: 71 Year
  Sex: Female
  Weight: 64.4108 kg

DRUGS (3)
  1. TRISENOX [Suspect]
     Indication: MULTIPLE MYELOMA
     Dosage: 16.25 MG, QD, IVI
     Dates: start: 20040525, end: 20040527
  2. ASCORBIC ACID [Suspect]
     Indication: MULTIPLE MYELOMA
     Dosage: 1 GM, QD, IVI
     Dates: start: 20040511, end: 20040511
  3. MELPHALAN [Suspect]
     Indication: MULTIPLE MYELOMA
     Dosage: 6 MG, QD, ORAL
     Route: 048
     Dates: start: 20040511, end: 20040511

REACTIONS (5)
  - ALANINE AMINOTRANSFERASE INCREASED [None]
  - ASPARTATE AMINOTRANSFERASE INCREASED [None]
  - PLEURAL EFFUSION [None]
  - SEPSIS [None]
  - URINARY TRACT INFECTION [None]
